FAERS Safety Report 7313568-2 (Version None)
Quarter: 2011Q1

REPORT INFORMATION
  Report Type: 
  Country: None (occurrence: None)
  Receive Date: 20110225
  Receipt Date: 20110216
  Transmission Date: 20110831
  Serious: Yes (Other)
  Sender: FDA-Public Use
  Company Number: US-TEVA-267711USA

PATIENT
  Sex: Female

DRUGS (2)
  1. TOPIRAMATE [Suspect]
     Indication: ANGIOPATHY
     Route: 048
     Dates: start: 20101222, end: 20110210
  2. TOPIRAMATE [Suspect]
     Indication: MIGRAINE PROPHYLAXIS
     Route: 048
     Dates: start: 20110214, end: 20110214

REACTIONS (3)
  - DYSTONIA [None]
  - RESPIRATORY DISTRESS [None]
  - MUSCLE SPASMS [None]
